FAERS Safety Report 19125091 (Version 2)
Quarter: 2021Q2

REPORT INFORMATION
  Report Type: Report from Study
  Country: US (occurrence: US)
  Receive Date: 20210412
  Receipt Date: 20210514
  Transmission Date: 20210717
  Serious: Yes (Other)
  Sender: FDA-Public Use
  Company Number: US-JNJFOC-20210408437

PATIENT
  Age: 70 Year
  Sex: Male
  Weight: 86.4 kg

DRUGS (3)
  1. TYLENOL [Concomitant]
     Active Substance: ACETAMINOPHEN
  2. UPTRAVI [Suspect]
     Active Substance: SELEXIPAG
     Dosage: UPTRAVI 1200 MCG ORALLY 2 TIMES DAILY
     Route: 048
     Dates: start: 202104
  3. UPTRAVI [Suspect]
     Active Substance: SELEXIPAG
     Indication: PULMONARY ARTERIAL HYPERTENSION
     Route: 048
     Dates: start: 202012

REACTIONS (2)
  - Pneumonia [Recovering/Resolving]
  - Muscle spasms [Recovering/Resolving]

NARRATIVE: CASE EVENT DATE: 202012
